FAERS Safety Report 5004412-7 (Version None)
Quarter: 2006Q2

REPORT INFORMATION
  Report Type: 
  Country: None (occurrence: None)
  Receive Date: 20060511
  Receipt Date: 20060427
  Transmission Date: 20061013
  Serious: Yes (Hospitalization)
  Sender: FDA-Public Use
  Company Number: 2006-BP-04803RO

PATIENT
  Age: 47 Year
  Sex: Female

DRUGS (8)
  1. LORAZEPAM [Suspect]
     Dosage: (0.5 MG), PO
     Route: 048
  2. AMITRIPTYLINE HCL [Suspect]
     Dosage: (50 MG), PO
     Route: 048
  3. FLUOXETINE [Suspect]
     Dosage: (10 MG), PO
     Route: 048
  4. OLANZAPINE [Suspect]
     Dosage: (10 MG), PO
     Route: 048
  5. VENLAFAXINE HCL [Suspect]
     Dosage: (37.5 MG), PO
     Route: 048
  6. METOPROLOL SUCCINATE [Suspect]
     Dosage: (25 MG), PO
     Route: 048
  7. PERCOCET [Suspect]
     Dosage: (5 MG), PO
     Route: 048
  8. PANTOPRAZOLE SODIUM [Suspect]
     Dosage: (40 MG), PO
     Route: 048

REACTIONS (11)
  - AREFLEXIA [None]
  - BLOOD PH INCREASED [None]
  - HEPATIC FAILURE [None]
  - HYPOTENSION [None]
  - INTENTIONAL OVERDOSE [None]
  - ISCHAEMIC HEPATITIS [None]
  - LIVER DISORDER [None]
  - LOSS OF CONSCIOUSNESS [None]
  - PO2 INCREASED [None]
  - RHABDOMYOLYSIS [None]
  - SINUS BRADYCARDIA [None]
